FAERS Safety Report 6984311-1 (Version None)
Quarter: 2010Q3

REPORT INFORMATION
  Report Type: 
  Country: None (occurrence: None)
  Receive Date: 20100915
  Receipt Date: 20100907
  Transmission Date: 20110219
  Serious: No
  Sender: FDA-Public Use
  Company Number: US-US-EMD SERONO, INC.-7011714

PATIENT
  Sex: Female

DRUGS (6)
  1. REBIF [Suspect]
     Indication: MULTIPLE SCLEROSIS
     Route: 058
     Dates: start: 20090101
  2. REBIF [Suspect]
     Route: 058
     Dates: start: 20100303
  3. CELEXA [Concomitant]
     Indication: DEPRESSION
     Dates: start: 20091201
  4. KLONOPIN [Concomitant]
     Indication: ANXIETY
  5. BACLOFEN [Concomitant]
     Indication: MULTIPLE SCLEROSIS
  6. VITAMIN D [Concomitant]
     Indication: VITAMIN D DECREASED
     Dates: start: 20090101

REACTIONS (9)
  - BLOOD POTASSIUM DECREASED [None]
  - CHEST PAIN [None]
  - DRUG ADMINISTRATION ERROR [None]
  - ELECTROCARDIOGRAM ABNORMAL [None]
  - HEART RATE DECREASED [None]
  - HYPOTENSION [None]
  - MEMORY IMPAIRMENT [None]
  - MULTIPLE SCLEROSIS RELAPSE [None]
  - PAIN IN EXTREMITY [None]
